FAERS Safety Report 18236375 (Version 1)
Quarter: 2020Q3

REPORT INFORMATION
  Report Type: Spontaneous
  Country: US (occurrence: US)
  Receive Date: 20200907
  Receipt Date: 20200907
  Transmission Date: 20201103
  Serious: Yes (Hospitalization, Other)
  Sender: FDA-Public Use
  Company Number: US-SA-2020SA241682

PATIENT

DRUGS (4)
  1. COUMADIN [Concomitant]
     Active Substance: WARFARIN SODIUM
     Dosage: UNK
     Dates: start: 20011216, end: 20011217
  2. ELIQUIS [Suspect]
     Active Substance: APIXABAN
     Indication: ATRIAL FIBRILLATION
  3. CLOPIDOGREL BISULFATE. [Suspect]
     Active Substance: CLOPIDOGREL BISULFATE
     Indication: ATRIAL FIBRILLATION
     Dosage: UNK
     Dates: start: 20200629
  4. ELMIRON [Concomitant]
     Active Substance: PENTOSAN POLYSULFATE SODIUM
     Dosage: 2.3 TIMES A DAY

REACTIONS (9)
  - Chromaturia [Unknown]
  - Pain [Unknown]
  - Intentional product use issue [Unknown]
  - Blood glucose fluctuation [Unknown]
  - Weight decreased [Unknown]
  - Contusion [Unknown]
  - Haematuria [Unknown]
  - Haemorrhage [Unknown]
  - Wrong technique in product usage process [Unknown]
